FAERS Safety Report 17183559 (Version 2)
Quarter: 2019Q4

REPORT INFORMATION
  Report Type: Report from Study
  Country: BR (occurrence: BR)
  Receive Date: 20191220
  Receipt Date: 20191227
  Transmission Date: 20200122
  Serious: Yes (Other)
  Sender: FDA-Public Use
  Company Number: NVSC2019BR072968

PATIENT
  Sex: Female
  Weight: 74 kg

DRUGS (1)
  1. TIMOLOL MALEATE. [Suspect]
     Active Substance: TIMOLOL MALEATE
     Indication: GLAUCOMA
     Dosage: 1 GTT IN EACH EYE, QD (EYE DROPS)
     Route: 047
     Dates: start: 2004

REACTIONS (2)
  - Ischaemia [Recovering/Resolving]
  - Hypertension [Unknown]
